FAERS Safety Report 12100565 (Version 1)
Quarter: 2016Q1

REPORT INFORMATION
  Report Type: Spontaneous
  Country: AR (occurrence: AR)
  Receive Date: 20160222
  Receipt Date: 20160222
  Transmission Date: 20160526
  Serious: Yes (Hospitalization, Other)
  Sender: FDA-Public Use
  Company Number: CHPA2016AR002114

PATIENT
  Age: 52 Year
  Sex: Female

DRUGS (3)
  1. OTRIVINA [Suspect]
     Active Substance: XYLOMETAZOLINE
     Indication: RHINITIS ALLERGIC
     Dosage: UNK
     Route: 065
     Dates: start: 1987
  2. SINTROM [Suspect]
     Active Substance: ACENOCOUMAROL
     Indication: PRODUCT USED FOR UNKNOWN INDICATION
     Dosage: UNK
     Route: 065
     Dates: start: 1999, end: 2015
  3. OTRIVINA [Suspect]
     Active Substance: XYLOMETAZOLINE
     Dosage: UNK
     Route: 065

REACTIONS (6)
  - Syncope [Recovered/Resolved]
  - Cardiac murmur [Recovered/Resolved]
  - Aortic stenosis [Recovered/Resolved]
  - Aneurysm [Recovered/Resolved]
  - Chest discomfort [Recovered/Resolved]
  - Mediastinitis [Recovered/Resolved]

NARRATIVE: CASE EVENT DATE: 20140218
